FAERS Safety Report 5477587-3 (Version None)
Quarter: 2007Q4

REPORT INFORMATION
  Report Type: 
  Country: None (occurrence: None)
  Receive Date: 20071001
  Receipt Date: 20070914
  Transmission Date: 20080405
  Serious: Yes (Hospitalization)
  Sender: FDA-Public Use
  Company Number: 2007001594

PATIENT
  Age: 73 Year
  Sex: Male

DRUGS (7)
  1. ERLOTINIB (ERLOTINIB HCL) (150 MILLIGRAM, TABLET, (ERLOTINIB HCL) [Suspect]
     Dosage: 150 MG (QD), ORAL
     Route: 048
     Dates: start: 20061213, end: 20070430
  2. BEVACIZUMAB (1185 MILLIGRAM, INJECTION FOR INFUSION) [Suspect]
     Indication: NON-SMALL CELL LUNG CANCER
     Dosage: 1185 MG, (Q3W); INTRAVENOUS
     Route: 042
     Dates: start: 20061213, end: 20070530
  3. CISPLATIN (CISPLATIN) (160 MILLIGRAM, INJECTION FOR INFUSION) [Concomitant]
     Indication: NON-SMALL CELL LUNG CANCER
     Dosage: 160 MG, (Q3W); INTRAVENOUS
     Route: 042
     Dates: start: 20070705, end: 20070731
  4. GEMCITABINE (GEMCITABINE) (2500 MILLIGRAM, INJECTION FOR INFUSION) [Suspect]
     Indication: NON-SMALL CELL LUNG CANCER
     Dosage: 2500 MILLIGRAM, INJECTION
     Dates: start: 20070705, end: 20070809
  5. IRFEN (IBUPROFEN) [Concomitant]
  6. ACETAMINOPHEN [Concomitant]
  7. NEXIUM [Concomitant]

REACTIONS (5)
  - BETA HAEMOLYTIC STREPTOCOCCAL INFECTION [None]
  - BURSITIS [None]
  - DRUG TOXICITY [None]
  - STAPHYLOCOCCAL INFECTION [None]
  - SUPERINFECTION [None]
